FAERS Safety Report 7914977-0 (Version None)
Quarter: 2011Q4

REPORT INFORMATION
  Report Type: 
  Country: None (occurrence: None)
  Receive Date: 20111115
  Receipt Date: 20111101
  Transmission Date: 20120403
  Serious: Yes (Death, Disabling)
  Sender: FDA-Public Use
  Company Number: US-BAYER-200912047NA

PATIENT
  Age: 42 Year
  Sex: Male
  Weight: 81 kg

DRUGS (36)
  1. LEVOTHROID [Concomitant]
  2. LOTREL [Concomitant]
  3. EPOGEN [Concomitant]
     Dosage: WITH EACH HD
  4. MAGNEVIST [Suspect]
     Indication: NUCLEAR MAGNETIC RESONANCE IMAGING
     Dosage: 20 ML, ONCE
     Dates: start: 19990818, end: 19990818
  5. LANOXIN [Concomitant]
  6. PHOSLO [Concomitant]
     Route: 048
  7. MAGNEVIST [Suspect]
  8. OMNISCAN [Suspect]
  9. IMURAN [Concomitant]
     Dates: start: 19910101
  10. OMNISCAN [Suspect]
     Indication: NUCLEAR MAGNETIC RESONANCE IMAGING BRAIN
     Dosage: UNK
     Dates: start: 20051206, end: 20051206
  11. OPTIMARK [Suspect]
     Dosage: 30 ML, ONCE
     Route: 042
     Dates: start: 20060323, end: 20060323
  12. MULTIHANCE [Suspect]
     Indication: NUCLEAR MAGNETIC RESONANCE IMAGING
  13. ASCORBIC ACID W/FOLIC ACID/IRON/VITAMIN B12 [Concomitant]
  14. PROTONIX [Concomitant]
  15. ACYCLOVIR [Concomitant]
     Dates: start: 19910101
  16. OPTIMARK [Suspect]
     Indication: NUCLEAR MAGNETIC RESONANCE IMAGING
     Dosage: 20 ML, ONCE
     Dates: start: 20050901, end: 20050901
  17. PROHANCE [Suspect]
     Indication: NUCLEAR MAGNETIC RESONANCE IMAGING
  18. MORPHINE [Concomitant]
  19. REGLAN [Concomitant]
  20. PRAVACHOL [Concomitant]
  21. NEURONTIN [Concomitant]
  22. QUININE SULFATE [Concomitant]
  23. MAGNEVIST [Suspect]
  24. IMODIUM [Concomitant]
  25. GASTROMARK [Concomitant]
     Indication: NUCLEAR MAGNETIC RESONANCE IMAGING ABDOMINAL
     Dates: start: 20060323, end: 20060323
  26. MAGNEVIST [Suspect]
     Indication: NUCLEAR MAGNETIC RESONANCE IMAGING BRAIN
  27. OMNISCAN [Suspect]
     Indication: NUCLEAR MAGNETIC RESONANCE IMAGING
     Dosage: UNK
     Dates: start: 20060516, end: 20060516
  28. AVINZA [Concomitant]
  29. NIFEREX [Concomitant]
  30. COUMADIN [Concomitant]
  31. LANTUS [Concomitant]
  32. NOVOLOG [Concomitant]
  33. RENA-VITE [VIT C,VIT H,B5,B12,B9,B3,B6,B2,B1 HCL] [Concomitant]
  34. ACIPHEX [Concomitant]
  35. NEPHROCAPS [Concomitant]
  36. CYCLOSPORINE [Concomitant]
     Dosage: 100 MG ONETIME DOSE
     Dates: start: 19910101, end: 19910101

REACTIONS (21)
  - GENERAL PHYSICAL HEALTH DETERIORATION [None]
  - DRY SKIN [None]
  - POST INFLAMMATORY PIGMENTATION CHANGE [None]
  - RASH GENERALISED [None]
  - STASIS DERMATITIS [None]
  - SKIN ULCER [None]
  - PAIN [None]
  - EMOTIONAL DISTRESS [None]
  - SKIN INDURATION [None]
  - JOINT RANGE OF MOTION DECREASED [None]
  - SKIN TIGHTNESS [None]
  - SKIN HYPERTROPHY [None]
  - XEROSIS [None]
  - ANXIETY [None]
  - RASH MACULAR [None]
  - ANHEDONIA [None]
  - NEPHROGENIC SYSTEMIC FIBROSIS [None]
  - NEUROPATHIC ARTHROPATHY [None]
  - SKIN EXFOLIATION [None]
  - OEDEMA [None]
  - JOINT CONTRACTURE [None]
